FAERS Safety Report 25754536 (Version 1)
Quarter: 2025Q3

REPORT INFORMATION
  Report Type: Spontaneous
  Country: EU (occurrence: EU)
  Receive Date: 20250903
  Receipt Date: 20250903
  Transmission Date: 20251021
  Serious: Yes (Other)
  Sender: AUROBINDO
  Company Number: EU-AFSSAPS-NC2025001296

PATIENT
  Age: 74 Year
  Sex: Female
  Weight: 49.5 kg

DRUGS (8)
  1. VALPROIC ACID [Suspect]
     Active Substance: VALPROIC ACID
     Indication: Epilepsy
     Dosage: 1000 MILLIGRAM, ONCE A DAY
     Route: 048
     Dates: start: 20250603, end: 20250605
  2. VALPROATE SODIUM [Suspect]
     Active Substance: VALPROATE SODIUM
     Indication: Epilepsy
     Dosage: 2000 MILLIGRAM, ONCE A DAY
     Route: 042
     Dates: start: 20250602, end: 20250602
  3. VALPROATE SODIUM [Suspect]
     Active Substance: VALPROATE SODIUM
     Dosage: 1500 MILLIGRAM, ONCE A DAY
     Route: 042
     Dates: start: 20250606, end: 20250610
  4. VALPROATE SODIUM [Suspect]
     Active Substance: VALPROATE SODIUM
     Indication: Epilepsy
     Dosage: 1000 MILLIGRAM, ONCE A DAY
     Route: 048
     Dates: start: 20250611, end: 20250615
  5. VALPROATE SODIUM [Suspect]
     Active Substance: VALPROATE SODIUM
     Dosage: 1500 MILLIGRAM, ONCE A DAY
     Route: 048
     Dates: start: 20250616, end: 20250617
  6. VALPROATE SODIUM [Suspect]
     Active Substance: VALPROATE SODIUM
     Dosage: 1750 MILLIGRAM, ONCE A DAY
     Route: 048
     Dates: start: 20250618, end: 20250622
  7. VALPROATE SODIUM [Suspect]
     Active Substance: VALPROATE SODIUM
     Dosage: 2000 MILLIGRAM, ONCE A DAY
     Route: 048
     Dates: start: 20250623, end: 20250707
  8. VALPROATE SODIUM [Suspect]
     Active Substance: VALPROATE SODIUM
     Dosage: 1500 MILLIGRAM, ONCE A DAY
     Route: 048
     Dates: start: 20250708

REACTIONS (2)
  - Thrombocytopenia [Recovering/Resolving]
  - Anaemia [Recovering/Resolving]

NARRATIVE: CASE EVENT DATE: 20250611
